FAERS Safety Report 13433934 (Version 3)
Quarter: 2017Q2

REPORT INFORMATION
  Report Type: Spontaneous
  Country: FR (occurrence: FR)
  Receive Date: 20170412
  Receipt Date: 20170614
  Transmission Date: 20170830
  Serious: Yes (Hospitalization, Disabling)
  Sender: FDA-Public Use
  Company Number: FR-JNJFOC-20170402595

PATIENT
  Age: 69 Year
  Sex: Female
  Weight: 51 kg

DRUGS (4)
  1. RISPERDAL [Suspect]
     Active Substance: RISPERIDONE
     Indication: MENTAL DISORDER
     Route: 048
     Dates: start: 20150320, end: 20150320
  2. RISPERDAL [Suspect]
     Active Substance: RISPERIDONE
     Indication: MENTAL DISORDER
     Route: 048
     Dates: start: 20150318, end: 20150318
  3. RISPERDAL [Suspect]
     Active Substance: RISPERIDONE
     Indication: MENTAL DISORDER
     Route: 048
     Dates: start: 20150319, end: 20150319
  4. RISPERDAL [Suspect]
     Active Substance: RISPERIDONE
     Indication: MENTAL DISORDER
     Route: 048
     Dates: start: 20150321, end: 20150321

REACTIONS (7)
  - Product use in unapproved indication [Unknown]
  - Retinal detachment [Recovered/Resolved with Sequelae]
  - Off label use [Unknown]
  - Visual acuity reduced [Recovered/Resolved with Sequelae]
  - Incorrect dose administered [Unknown]
  - Deafness [Recovered/Resolved]
  - Vitreous loss [Recovered/Resolved with Sequelae]

NARRATIVE: CASE EVENT DATE: 20150318
